FAERS Safety Report 23460863 (Version 1)
Quarter: 2024Q1

REPORT INFORMATION
  Report Type: Spontaneous
  Country: US (occurrence: None)
  Receive Date: 20240130
  Receipt Date: 20240130
  Transmission Date: 20240410
  Serious: No
  Sender: FDA-Public Use
  Company Number: None

PATIENT
  Age: 54 Year
  Sex: Female
  Weight: 74.25 kg

DRUGS (4)
  1. GABAPENTIN [Suspect]
     Active Substance: GABAPENTIN
     Indication: Neuralgia
     Dosage: OTHER QUANTITY : 2 CAPSULE(S);?FREQUENCY : 3 TIMES A DAY;?
     Route: 048
  2. HYDROCHLOROTHIAZIDE [Concomitant]
     Active Substance: HYDROCHLOROTHIAZIDE
  3. LOSARTAN [Concomitant]
     Active Substance: LOSARTAN
  4. VITAMIN D [Concomitant]
     Active Substance: VITAMIN D NOS

REACTIONS (19)
  - Increased tendency to bruise [None]
  - Clumsiness [None]
  - Cognitive disorder [None]
  - Memory impairment [None]
  - Speech disorder [None]
  - Tooth dislocation [None]
  - Withdrawal syndrome [None]
  - Hot flush [None]
  - Neck pain [None]
  - Arthralgia [None]
  - Nausea [None]
  - Headache [None]
  - Hypoaesthesia [None]
  - Mood swings [None]
  - Affect lability [None]
  - Anxiety [None]
  - Brain fog [None]
  - Lethargy [None]
  - Memory impairment [None]

NARRATIVE: CASE EVENT DATE: 20231201
